FAERS Safety Report 8453685 (Version 3)
Quarter: 2015Q4

REPORT INFORMATION
  Report Type: Report from Study
  Country: US (occurrence: US)
  Receive Date: 20120312
  Receipt Date: 20151201
  Transmission Date: 20160305
  Serious: Yes (Other)
  Sender: FDA-Public Use
  Company Number: US-ROCHE-1044798

PATIENT
  Age: 54 Year
  Sex: Male

DRUGS (9)
  1. POVIDONE [Concomitant]
     Active Substance: POVIDONE
     Route: 065
  2. TROPICAMIDE. [Concomitant]
     Active Substance: TROPICAMIDE
     Indication: MYDRIASIS
     Dosage: OU
     Route: 065
  3. TIMOLOL. [Concomitant]
     Active Substance: TIMOLOL
     Dosage: OS (LEFT EYE)
     Route: 047
     Dates: start: 20111202
  4. LUCENTIS [Suspect]
     Active Substance: RANIBIZUMAB
     Indication: RETINITIS HISTOPLASMA
  5. POLYTRIM [Concomitant]
     Active Substance: POLYMYXIN B SULFATE\TRIMETHOPRIM SULFATE
     Dosage: 3-4 TIMES/DAY FOR 3 DAYS AFTER RANIBIZUMAB
     Route: 065
  6. PHENYLEPHRINE [Concomitant]
     Active Substance: PHENYLEPHRINE\PHENYLEPHRINE HYDROCHLORIDE
     Indication: MYDRIASIS
     Dosage: OU (BOTH EYE)
     Route: 065
  7. LUCENTIS [Suspect]
     Active Substance: RANIBIZUMAB
     Indication: PRESUMED OCULAR HISTOPLASMOSIS SYNDROME
     Dosage: ALSO RECEIVED ON 04/JUL/2011, 26/JUL/2011, 30/AUG/2011, 30/SEP/2011, 27/DEC/2011, 31/JAN/2012
     Route: 050
     Dates: start: 20100803
  8. PROPARACAINE [Concomitant]
     Active Substance: PROPARACAINE
     Dosage: OU
     Route: 065
  9. ASA [Concomitant]
     Active Substance: ASPIRIN
     Route: 048
     Dates: start: 20111227

REACTIONS (14)
  - Halo vision [Unknown]
  - Cataract [Unknown]
  - Vitreous floaters [Unknown]
  - Visual acuity reduced [Unknown]
  - Visual impairment [Unknown]
  - Paracentesis [Unknown]
  - Headache [Unknown]
  - Pain [Unknown]
  - Off label use [Unknown]
  - Retinal tear [Unknown]
  - Choroidal neovascularisation [Unknown]
  - Ocular hypertension [Unknown]
  - Vision blurred [Unknown]
  - Visual field defect [Not Recovered/Not Resolved]

NARRATIVE: CASE EVENT DATE: 20110726
